FAERS Safety Report 9469655 (Version 1)
Quarter: 2013Q3

REPORT INFORMATION
  Report Type: Spontaneous
  Country: US (occurrence: None)
  Receive Date: 20130820
  Receipt Date: 20130820
  Transmission Date: 20140515
  Serious: Yes (Death)
  Sender: FDA-Public Use
  Company Number: None

PATIENT
  Age: 83 Year
  Sex: Female

DRUGS (5)
  1. GEODON [Suspect]
     Route: 030
     Dates: start: 20121107
  2. LISINOPRIL [Suspect]
     Route: 048
     Dates: start: 20121026, end: 20121107
  3. PANTOPRAZOLE [Concomitant]
  4. ZOLPIDEM [Concomitant]
  5. ACETYLCYSTEINE [Concomitant]

REACTIONS (17)
  - Agitation [None]
  - Angioedema [None]
  - Atelectasis [None]
  - Atrial fibrillation [None]
  - Brain injury [None]
  - Confusional state [None]
  - Decerebrate posture [None]
  - Erythema [None]
  - Glossodynia [None]
  - Hallucination [None]
  - Hypotension [None]
  - Macroglossia [None]
  - Nervous system disorder [None]
  - Oropharyngeal pain [None]
  - Restlessness [None]
  - Respiratory failure [None]
  - Cardio-respiratory arrest [None]
